FAERS Safety Report 21644812 (Version 12)
Quarter: 2025Q1

REPORT INFORMATION
  Report Type: Spontaneous
  Country: DE (occurrence: DE)
  Receive Date: 20221125
  Receipt Date: 20250205
  Transmission Date: 20250408
  Serious: Yes (Death, Hospitalization, Other)
  Sender: MERCK
  Company Number: DE-009507513-2211DEU005326

PATIENT
  Age: 29 Year
  Sex: Male

DRUGS (3)
  1. TEMOZOLOMIDE [Suspect]
     Active Substance: TEMOZOLOMIDE
     Indication: Oligodendroglioma
     Route: 048
  2. TEMOZOLOMIDE [Suspect]
     Active Substance: TEMOZOLOMIDE
     Route: 048
  3. TEMOZOLOMIDE [Suspect]
     Active Substance: TEMOZOLOMIDE
     Route: 048

REACTIONS (6)
  - Malignant glioma [Fatal]
  - Disease progression [Fatal]
  - Gene mutation [Unknown]
  - Nausea [Unknown]
  - Intentional product use issue [Unknown]
  - Product use in unapproved indication [Unknown]
